FAERS Safety Report 9742260 (Version 1)
Quarter: 2013Q4

REPORT INFORMATION
  Report Type: Spontaneous
  Country: US (occurrence: US)
  Receive Date: 20131210
  Receipt Date: 20131210
  Transmission Date: 20140711
  Serious: Yes (Disabling, Other)
  Sender: FDA-Public Use
  Company Number: US-SA-2013SA127631

PATIENT
  Age: 76 Year
  Sex: Female

DRUGS (3)
  1. LANTUS SOLOSTAR [Suspect]
     Dosage: TAKEN FROM: MORE THAN A YEAR. DOSE:70 UNIT(S)
     Route: 051
  2. LANTUS [Suspect]
     Route: 065
  3. SOLOSTAR [Concomitant]

REACTIONS (4)
  - Cerebrovascular accident [Unknown]
  - Cardiac disorder [Unknown]
  - Arrhythmia [Unknown]
  - Blindness [Not Recovered/Not Resolved]
